FAERS Safety Report 8945512 (Version 1)
Quarter: 2012Q4

REPORT INFORMATION
  Report Type: 
  Country: JM (occurrence: JM)
  Receive Date: 20121204
  Receipt Date: 20121204
  Transmission Date: 20130627
  Serious: Yes (Death, Hospitalization)
  Sender: FDA-Public Use
  Company Number: JM-B.I. PHARMACEUTICALS,INC./RIDGEFIELD-2012-CN-02462CN

PATIENT
  Age: 69 Year
  Sex: Male

DRUGS (8)
  1. SPIRIVA [Suspect]
     Indication: CHRONIC OBSTRUCTIVE PULMONARY DISEASE
     Dates: start: 2011
  2. ASPIRIN [Concomitant]
  3. ALDACTONE [Concomitant]
  4. SERETIDE [Concomitant]
  5. PREDNISONE [Concomitant]
  6. RANITIDINE [Concomitant]
  7. DIPYRIDAMOLE [Concomitant]
  8. LASIX [Concomitant]

REACTIONS (1)
  - Pulmonary oedema [Fatal]
